FAERS Safety Report 17042526 (Version 1)
Quarter: 2019Q4

REPORT INFORMATION
  Report Type: Spontaneous
  Country: TR (occurrence: TR)
  Receive Date: 20191118
  Receipt Date: 20191118
  Transmission Date: 20200122
  Serious: Yes (Other)
  Sender: FDA-Public Use
  Company Number: TR-ROCHE-2389122

PATIENT
  Age: 72 Year
  Sex: Female
  Weight: 62 kg

DRUGS (10)
  1. ENDOXAN [CYCLOPHOSPHAMIDE] [Concomitant]
     Active Substance: CYCLOPHOSPHAMIDE
     Dosage: 1X1
     Route: 065
  2. ARA-C [Concomitant]
     Active Substance: CYTARABINE
  3. RITUXIMAB. [Suspect]
     Active Substance: RITUXIMAB
     Indication: DIFFUSE LARGE B-CELL LYMPHOMA
     Route: 065
  4. LERCADIP [LERCANIDIPINE HYDROCHLORIDE] [Concomitant]
  5. HYDROXYDAUNORUBICIN [Concomitant]
     Active Substance: DOXORUBICIN
  6. DEXAMETHASONE. [Concomitant]
     Active Substance: DEXAMETHASONE
  7. CYCLOPHOSPHAMIDE. [Concomitant]
     Active Substance: CYCLOPHOSPHAMIDE
  8. ONCOVIN [Concomitant]
     Active Substance: VINCRISTINE SULFATE
  9. PLATINOL [Concomitant]
     Active Substance: CISPLATIN
  10. PREDNISONE. [Concomitant]
     Active Substance: PREDNISONE

REACTIONS (1)
  - Diffuse large B-cell lymphoma recurrent [Unknown]
